FAERS Safety Report 15852464 (Version 3)
Quarter: 2019Q1

REPORT INFORMATION
  Report Type: Report from Study
  Country: IE (occurrence: IE)
  Receive Date: 20190122
  Receipt Date: 20190219
  Transmission Date: 20190417
  Serious: Yes (Death, Hospitalization)
  Sender: FDA-Public Use
  Company Number: IE-ROCHE-2247029

PATIENT
  Age: 59 Year
  Sex: Female
  Weight: 81.2 kg

DRUGS (8)
  1. OBINUTUZUMAB. [Suspect]
     Active Substance: OBINUTUZUMAB
     Indication: CHRONIC LYMPHOCYTIC LEUKAEMIA
     Dosage: ON 03/OCT/2018, SHE RECEIVED THE MOST RECENT DOSE (1000 MG) OF OBINUTUZUMAB PRIOR TO AE (ADVERSE EVE
     Route: 042
     Dates: start: 20180516
  2. TRAMADOL. [Concomitant]
     Active Substance: TRAMADOL
     Route: 048
     Dates: start: 20190114
  3. PARACETAMOL [Concomitant]
     Active Substance: ACETAMINOPHEN
     Route: 048
     Dates: start: 20190114, end: 20190114
  4. VENETOCLAX. [Suspect]
     Active Substance: VENETOCLAX
     Indication: CHRONIC LYMPHOCYTIC LEUKAEMIA
     Dosage: ON 14/JAN/2019, SHE RECEIVED THE MOST RECENT DOSE (400 MG) OF VENETOCLAX PRIOR TO AE (ADVERSE EVENT)
     Route: 048
     Dates: start: 20180606
  5. IBRUTINIB [Suspect]
     Active Substance: IBRUTINIB
     Indication: CHRONIC LYMPHOCYTIC LEUKAEMIA
     Dosage: ON 14/JAN/2019, SHE RECEIVED THE MOST RECENT DOSE (420 MG) OF IBRUTINIB PRIOR TO AE (ADVERSE EVENT)
     Route: 048
     Dates: start: 20180516
  6. FLUCLOXACILLIN [Concomitant]
     Active Substance: FLUCLOXACILLIN
     Route: 042
     Dates: start: 20190114
  7. CYCLIZINE [Concomitant]
     Active Substance: CYCLIZINE
     Route: 048
     Dates: start: 20190115
  8. BENZYLPENICILLIN [Concomitant]
     Active Substance: PENICILLIN G
     Route: 042
     Dates: start: 20190114

REACTIONS (3)
  - Depressed level of consciousness [Fatal]
  - Encephalitis [Fatal]
  - Cellulitis [Not Recovered/Not Resolved]

NARRATIVE: CASE EVENT DATE: 20190114
